FAERS Safety Report 4745944-6 (Version None)
Quarter: 2005Q3

REPORT INFORMATION
  Report Type: 
  Country: None (occurrence: None)
  Receive Date: 20050816
  Receipt Date: 20050810
  Transmission Date: 20060218
  Serious: Yes (Hospitalization)
  Sender: FDA-Public Use
  Company Number: JP-GLAXOSMITHKLINE-B0390487A

PATIENT
  Age: 36 Year
  Sex: Male

DRUGS (6)
  1. PAXIL [Suspect]
     Indication: DEPRESSION
     Dosage: 20MG TWICE PER DAY
     Route: 048
     Dates: start: 20050517, end: 20050810
  2. MEILAX [Concomitant]
     Route: 048
  3. GASTER [Concomitant]
     Route: 065
  4. CHOLEBRINE [Concomitant]
     Route: 048
  5. SOLANAX [Concomitant]
     Route: 048
  6. CALBLOCK [Concomitant]
     Route: 048

REACTIONS (1)
  - LIVER DISORDER [None]
